FAERS Safety Report 17656369 (Version 3)
Quarter: 2020Q2

REPORT INFORMATION
  Report Type: Spontaneous
  Country: IT (occurrence: IT)
  Receive Date: 20200410
  Receipt Date: 20200417
  Transmission Date: 20200713
  Serious: Yes (Hospitalization)
  Sender: FDA-Public Use
  Company Number: IT-ARRAY-2020-07480

PATIENT

DRUGS (5)
  1. BRAFTOVI [Suspect]
     Active Substance: ENCORAFENIB
     Indication: COLON CANCER METASTATIC
     Dosage: 300 MG, QD (1/DAY)
     Route: 048
     Dates: start: 20200220, end: 20200326
  2. CETUXIMAB. [Suspect]
     Active Substance: CETUXIMAB
     Dosage: 750 MG, SINGLE
     Route: 042
     Dates: start: 20200220, end: 20200220
  3. BASSADO [DOXYCYCLINE HYCLATE] [Concomitant]
     Indication: ANTIBIOTIC THERAPY
     Dosage: 100 MG, QD (1/DAY)
     Route: 065
     Dates: start: 20200220, end: 20200326
  4. OMEPRAZOLO [Concomitant]
     Active Substance: OMEPRAZOLE
     Indication: PROPHYLAXIS
     Dosage: UNK, UNKNOWN
     Route: 065
     Dates: start: 20200110, end: 20200326
  5. CETUXIMAB. [Suspect]
     Active Substance: CETUXIMAB
     Indication: COLON CANCER METASTATIC
     Dosage: 450 MG, WEEKLY
     Route: 042
     Dates: start: 20200227, end: 20200319

REACTIONS (5)
  - Disease progression [Unknown]
  - Interstitial lung disease [Not Recovered/Not Resolved]
  - Coronavirus test positive [Not Recovered/Not Resolved]
  - Anal fistula [Unknown]
  - Product use in unapproved indication [Unknown]

NARRATIVE: CASE EVENT DATE: 20200326
